FAERS Safety Report 8510435-3 (Version None)
Quarter: 2012Q3

REPORT INFORMATION
  Report Type: 
  Country: None (occurrence: None)
  Receive Date: 20120714
  Receipt Date: 20120711
  Transmission Date: 20120928
  Serious: Yes (Death, Other)
  Sender: FDA-Public Use
  Company Number: PHHY2012CN054211

PATIENT
  Age: 20 Year
  Sex: Female

DRUGS (16)
  1. MYCOPHENOLATE MEFETIL [Concomitant]
     Indication: PROPHYLAXIS AGAINST GRAFT VERSUS HOST DISEASE
     Dosage: 25 MG/KG, QD
     Route: 048
  2. HUMAN TPO [Concomitant]
     Dosage: 150 U/KG/DAY
     Route: 058
  3. CYCLOPHOSPHAMIDE [Suspect]
     Indication: IMMUNOSUPPRESSION
     Dosage: 1200 MG/M2, DAILY
  4. ANTI-THYMOCYTE GLOBULIN NOS [Suspect]
     Indication: IMMUNOSUPPRESSION
     Dosage: 30 MG/KG, UNK
  5. CYCLOSPORINE [Suspect]
     Indication: CORD BLOOD TRANSPLANT THERAPY
  6. CYCLOSPORINE [Suspect]
     Route: 048
  7. PLATELET [Concomitant]
  8. CYCLOSPORINE [Suspect]
  9. RED BLOOD CELLS [Concomitant]
  10. FILGRASTIM [Concomitant]
     Dosage: 5 UG/KG, QD
  11. ANTIBIOTICS [Concomitant]
     Indication: FEBRILE NEUTROPENIA
  12. CYCLOSPORINE [Suspect]
     Indication: PROPHYLAXIS AGAINST GRAFT VERSUS HOST DISEASE
     Dosage: 3 MG/KG, DAY
     Route: 042
  13. ITRACONAZOLE [Concomitant]
     Indication: INFECTION PROPHYLAXIS
     Route: 048
  14. ACYCLOVIR [Concomitant]
     Indication: INFECTION PROPHYLAXIS
     Route: 042
  15. FLUDARABINE PHOSPHATE [Suspect]
     Indication: IMMUNOSUPPRESSION
     Dosage: 120 MG/M2, DAILY
  16. STEROIDS NOS [Concomitant]

REACTIONS (6)
  - CEREBRAL HAEMORRHAGE [None]
  - HAEMORRHAGE INTRACRANIAL [None]
  - FEBRILE NEUTROPENIA [None]
  - DRUG INEFFECTIVE [None]
  - TRANSPLANT FAILURE [None]
  - PNEUMONIA BACTERIAL [None]
